FAERS Safety Report 8747121 (Version 2)
Quarter: 2012Q4

REPORT INFORMATION
  Report Type: 
  Country: US (occurrence: US)
  Receive Date: 20120827
  Receipt Date: 20121114
  Transmission Date: 20130627
  Serious: Yes (Other)
  Sender: FDA-Public Use
  Company Number: US-JNJFOC-20120810876

PATIENT
  Sex: Female
  Weight: 55.34 kg

DRUGS (7)
  1. REMICADE [Suspect]
     Indication: PSORIATIC ARTHROPATHY
     Dosage: 5 mg/kg
     Route: 042
     Dates: start: 20040405, end: 20120629
  2. REMICADE [Suspect]
     Indication: RHEUMATOID ARTHRITIS
     Dosage: 5 mg/kg
     Route: 042
     Dates: start: 20040405, end: 20120629
  3. EFFEXOR [Concomitant]
     Route: 065
  4. VITAMIN D [Concomitant]
     Route: 065
  5. WELLBUTRIN [Concomitant]
     Route: 065
  6. CALCIUM [Concomitant]
     Route: 065
  7. CLARITIN [Concomitant]
     Route: 065

REACTIONS (2)
  - Smear cervix abnormal [Recovering/Resolving]
  - Human papilloma virus test positive [Recovering/Resolving]
